FAERS Safety Report 4322482-6 (Version None)
Quarter: 2004Q1

REPORT INFORMATION
  Report Type: 
  Country: None (occurrence: None)
  Receive Date: 20040319
  Receipt Date: 20040308
  Transmission Date: 20041129
  Serious: Yes (Death, Hospitalization)
  Sender: FDA-Public Use
  Company Number: UK055145

PATIENT
  Age: 67 Year
  Sex: Female

DRUGS (2)
  1. NEUPOGEN [Suspect]
     Indication: MYELODYSPLASTIC SYNDROME
     Dosage: 480 MCG, 3 TIMES/WK
     Dates: start: 20031001, end: 20031106
  2. ERYTHROPOIETIN HUMAN [Concomitant]

REACTIONS (3)
  - HAEMOCHROMATOSIS [None]
  - HAEMOSIDEROSIS [None]
  - HEPATORENAL FAILURE [None]
